FAERS Safety Report 15659062 (Version 1)
Quarter: 2018Q4

REPORT INFORMATION
  Report Type: Report from Study
  Country: US (occurrence: US)
  Receive Date: 20181127
  Receipt Date: 20181127
  Transmission Date: 20190205
  Serious: Yes (Death, Other)
  Sender: FDA-Public Use
  Company Number: US-SA-2018SA320136

PATIENT

DRUGS (7)
  1. GANETESPIB [Suspect]
     Active Substance: GANETESPIB
     Dosage: 100 MG/M2, OVER 1 HOUR, WEEKLY
     Route: 042
  2. AFLIBERCEPT [Suspect]
     Active Substance: AFLIBERCEPT
     Dosage: 4 MG/KG, DAY 15 (OVER1 HOUR), EVERY 2 WEEKS
     Route: 042
  3. GANETESPIB [Suspect]
     Active Substance: GANETESPIB
     Dosage: 100 MG/M2, DAY 8, OVER 1 HOUR, WEEKLY
     Route: 042
  4. AFLIBERCEPT [Suspect]
     Active Substance: AFLIBERCEPT
     Indication: NEOPLASM MALIGNANT
     Dosage: 4 MG/KG, DAY 1 (OVER1 HOUR), EVERY 2 WEEKS
     Route: 042
  5. AFLIBERCEPT [Suspect]
     Active Substance: AFLIBERCEPT
     Dosage: 3 MG/KG (OVER1 HOUR), EVERY 2 WEEKS
     Route: 042
  6. GANETESPIB [Suspect]
     Active Substance: GANETESPIB
     Indication: NEOPLASM MALIGNANT
     Dosage: 100 MG/M2, DAY 1, OVER 1 HOUR, WEEKLY
     Route: 042
  7. GANETESPIB [Suspect]
     Active Substance: GANETESPIB
     Dosage: 100 MG/M2, DAY 15, OVER 1 HOUR, WEEKLY
     Route: 042

REACTIONS (1)
  - Gastrointestinal haemorrhage [Fatal]
